FAERS Safety Report 18632301 (Version 1)
Quarter: 2020Q4

REPORT INFORMATION
  Report Type: Spontaneous
  Country: NL (occurrence: NL)
  Receive Date: 20201217
  Receipt Date: 20201217
  Transmission Date: 20210114
  Serious: Yes (Other)
  Sender: FDA-Public Use
  Company Number: NL-AUROBINDO-AUR-APL-2020-060652

PATIENT
  Sex: Male
  Weight: 108 kg

DRUGS (2)
  1. FINASTERIDE 5MG FILM COATED TABLETS [Suspect]
     Active Substance: FINASTERIDE
     Indication: PRODUCT USED FOR UNKNOWN INDICATION
     Dosage: 5 MILLIGRAM, ONCE A DAY
     Route: 065
     Dates: start: 201801, end: 20201103
  2. TAMSULOSINE [Concomitant]
     Active Substance: TAMSULOSIN HYDROCHLORIDE
     Indication: PRODUCT USED FOR UNKNOWN INDICATION
     Dosage: 1 DOSAGE FORM, ONCE A DAY
     Route: 065

REACTIONS (4)
  - Peyronie^s disease [Recovering/Resolving]
  - Loss of libido [Recovering/Resolving]
  - Depressed mood [Recovering/Resolving]
  - Suicide attempt [Recovering/Resolving]
